FAERS Safety Report 11129796 (Version 3)
Quarter: 2016Q2

REPORT INFORMATION
  Report Type: Spontaneous
  Country: US (occurrence: US)
  Receive Date: 20150521
  Receipt Date: 20160509
  Transmission Date: 20160815
  Serious: Yes (Other)
  Sender: FDA-Public Use
  Company Number: US-PFIZER INC-2015172434

PATIENT
  Age: 54 Year
  Sex: Female
  Weight: 59 kg

DRUGS (4)
  1. OXYMORPHONE [Concomitant]
     Active Substance: OXYMORPHONE
     Indication: BACK PAIN
     Dosage: 20 MG, 2X/DAY
     Route: 048
  2. CHANTIX [Suspect]
     Active Substance: VARENICLINE TARTRATE
     Indication: SMOKING CESSATION THERAPY
     Dosage: UNK
  3. TEMAZEPAM. [Concomitant]
     Active Substance: TEMAZEPAM
     Indication: INSOMNIA
     Dosage: 10 MG, DAILY (AT NIGHT)
     Route: 048
  4. OXYCODONE [Concomitant]
     Active Substance: OXYCODONE
     Indication: BACK PAIN
     Dosage: 5 MG, 2X/DAY
     Route: 048

REACTIONS (3)
  - Depression [Recovered/Resolved]
  - Suicidal behaviour [Recovered/Resolved]
  - Apathy [Unknown]
